FAERS Safety Report 4387658-0 (Version None)
Quarter: 2004Q2

REPORT INFORMATION
  Report Type: 
  Country: None (occurrence: None)
  Receive Date: 20040630
  Receipt Date: 20040521
  Transmission Date: 20050107
  Serious: No
  Sender: FDA-Public Use
  Company Number: US-GLAXOSMITHKLINE-A0512635A

PATIENT
  Age: 15 Year
  Sex: Female
  Weight: 107.7 kg

DRUGS (3)
  1. ADVAIR HFA [Suspect]
     Indication: ASTHMA
     Dosage: 250MCG UNKNOWN
     Route: 055
     Dates: start: 20030416, end: 20030101
  2. ALBUTEROL [Concomitant]
     Route: 055
  3. UNKNOWN MEDICATION [Concomitant]
     Route: 048

REACTIONS (1)
  - CHEST PAIN [None]
